FAERS Safety Report 4436811-6 (Version None)
Quarter: 2004Q3

REPORT INFORMATION
  Report Type: 
  Country: None (occurrence: None)
  Receive Date: 20040830
  Receipt Date: 20040817
  Transmission Date: 20050211
  Serious: Yes (Hospitalization, Other)
  Sender: FDA-Public Use
  Company Number: US-JNJFOC-20040806843

PATIENT
  Age: 60 Year
  Sex: Female

DRUGS (1)
  1. DITROPAN [Suspect]
     Indication: STRESS INCONTINENCE
     Route: 049

REACTIONS (2)
  - CARDIAC FAILURE CONGESTIVE [None]
  - FLUID RETENTION [None]
